FAERS Safety Report 8028057-X (Version None)
Quarter: 2012Q1

REPORT INFORMATION
  Report Type: 
  Country: None (occurrence: None)
  Receive Date: 20120106
  Receipt Date: 20120103
  Transmission Date: 20120608
  Serious: Yes (Life-Threatening, Hospitalization, Other)
  Sender: FDA-Public Use
  Company Number: GB-ROCHE-1024229

PATIENT
  Sex: Female

DRUGS (1)
  1. HERCEPTIN [Suspect]
     Indication: PRODUCT USED FOR UNKNOWN INDICATION

REACTIONS (5)
  - CARDIOMYOPATHY [None]
  - MULTI-ORGAN FAILURE [None]
  - LIVER FUNCTION TEST ABNORMAL [None]
  - RENAL FAILURE ACUTE [None]
  - MALAISE [None]
